FAERS Safety Report 6190931-7 (Version None)
Quarter: 2009Q2

REPORT INFORMATION
  Report Type: 
  Country: None (occurrence: None)
  Receive Date: 20090513
  Receipt Date: 20090507
  Transmission Date: 20091009
  Serious: Yes (Hospitalization)
  Sender: FDA-Public Use
  Company Number: 2009SP009786

PATIENT
  Age: 20 Year
  Sex: Female

DRUGS (4)
  1. PEG-INTRON [Suspect]
     Indication: HEPATITIS C
     Dosage: ; SC
     Route: 058
  2. REBETOL [Suspect]
     Indication: HEPATITIS C
     Dosage: ; PO
     Route: 048
  3. PEGINTERFERON ALFA-2A (PEGINTERFERON ALFA-2A) [Suspect]
     Indication: HEPATITIS C
  4. INTERFERON [Concomitant]

REACTIONS (4)
  - AUTOIMMUNE HEPATITIS [None]
  - DISEASE RECURRENCE [None]
  - HEPATITIS C [None]
  - THERAPEUTIC RESPONSE DECREASED [None]
